FAERS Safety Report 5987504-5 (Version None)
Quarter: 2008Q4

REPORT INFORMATION
  Report Type: 
  Country: None (occurrence: None)
  Receive Date: 20081209
  Receipt Date: 20081201
  Transmission Date: 20090506
  Serious: Yes (Hospitalization)
  Sender: FDA-Public Use
  Company Number: US-ELI_LILLY_AND_COMPANY-US200808001298

PATIENT
  Age: 81 Year
  Sex: Female
  Weight: 60.771 kg

DRUGS (7)
  1. CYMBALTA [Suspect]
     Indication: DEPRESSION
     Dosage: 40 MG, DAILY (1/D)
     Dates: end: 20080318
  2. CYMBALTA [Suspect]
     Dosage: 20 MG, DAILY (1/D)
     Dates: start: 20080319, end: 20080323
  3. DESYREL [Concomitant]
     Indication: DEPRESSION
     Dosage: 75 MG, UNK
  4. GABAPENTIN [Concomitant]
     Dosage: 100 MG, 3/D
  5. TORSEMIDE [Concomitant]
     Dosage: 2.5 MG, UNK
  6. ESTRADIOL [Concomitant]
     Route: 061
  7. LOVENOX [Concomitant]
     Dosage: 40 MG, DAILY (1/D)

REACTIONS (4)
  - ANGINA PECTORIS [None]
  - GALLOP RHYTHM PRESENT [None]
  - HYPERTENSION [None]
  - MYOCARDIAL INFARCTION [None]
